FAERS Safety Report 8707629 (Version 2)
Quarter: 2013Q4

REPORT INFORMATION
  Report Type: Spontaneous
  Country: US (occurrence: US)
  Receive Date: 20120805
  Receipt Date: 20131101
  Transmission Date: 20140711
  Serious: No
  Sender: FDA-Public Use
  Company Number: US-009507513-1207USA011431

PATIENT
  Sex: Female

DRUGS (4)
  1. ZOCOR [Suspect]
     Route: 048
  2. PRILOSEC [Suspect]
     Route: 048
  3. CRESTOR [Suspect]
     Route: 048
  4. ZETIA [Concomitant]
     Route: 048

REACTIONS (2)
  - Renal disorder [Unknown]
  - Off label use [Unknown]
